FAERS Safety Report 5219946-X (Version None)
Quarter: 2007Q1

REPORT INFORMATION
  Report Type: 
  Country: None (occurrence: None)
  Receive Date: 20070124
  Receipt Date: 20070124
  Transmission Date: 20070707
  Serious: Yes (Other)
  Sender: FDA-Public Use
  Company Number: None

PATIENT
  Age: 71 Year
  Sex: Male
  Weight: 95.3 kg

DRUGS (8)
  1. METFORMIN HCL [Suspect]
  2. GLYBURIDE [Concomitant]
  3. LISINOPRIL [Concomitant]
  4. ROSIGLITAZONE MALEATE [Concomitant]
  5. CITALOPRAM HYDROBROMIDE [Concomitant]
  6. CLONAZEPAM [Concomitant]
  7. ZOLPIDEM TARTRATE [Concomitant]
  8. AMLODIPINE BESYLATE [Concomitant]

REACTIONS (1)
  - NAUSEA [None]
